FAERS Safety Report 15449038 (Version 2)
Quarter: 2018Q4

REPORT INFORMATION
  Report Type: Spontaneous
  Country: US (occurrence: US)
  Receive Date: 20180930
  Receipt Date: 20181204
  Transmission Date: 20190204
  Serious: Yes (Other)
  Sender: FDA-Public Use
  Company Number: US-NOVOPROD-623128

PATIENT
  Age: 66 Year
  Sex: Female

DRUGS (1)
  1. VICTOZA [Suspect]
     Active Substance: LIRAGLUTIDE
     Indication: TYPE 2 DIABETES MELLITUS
     Dosage: 1.8 MG, QD
     Route: 058

REACTIONS (4)
  - Retinal tear [Unknown]
  - Fall [Recovered/Resolved]
  - Incorrect dose administered by device [Unknown]
  - Cataract [Recovering/Resolving]

NARRATIVE: CASE EVENT DATE: 201712
